FAERS Safety Report 6124016-2 (Version None)
Quarter: 2009Q1

REPORT INFORMATION
  Report Type: 
  Country: None (occurrence: None)
  Receive Date: 20090319
  Receipt Date: 20090312
  Transmission Date: 20090719
  Serious: Yes (Hospitalization)
  Sender: FDA-Public Use
  Company Number: DK-BAYER-200915628GPV

PATIENT
  Age: 35 Year
  Sex: Female

DRUGS (1)
  1. MAGNEVIST [Suspect]
     Indication: SCAN WITH CONTRAST
     Route: 014
     Dates: start: 20071219, end: 20071219

REACTIONS (4)
  - MALAISE [None]
  - NERVE COMPRESSION [None]
  - PARAESTHESIA [None]
  - SENSORY DISTURBANCE [None]
